FAERS Safety Report 9827310 (Version 2)
Quarter: 2014Q2

REPORT INFORMATION
  Report Type: Spontaneous
  Country: US (occurrence: US)
  Receive Date: 20140117
  Receipt Date: 20140401
  Transmission Date: 20141212
  Serious: Yes (Hospitalization)
  Sender: FDA-Public Use
  Company Number: US-ASTRAZENECA-2014SE01958

PATIENT
  Age: 26927 Day
  Sex: Female
  Weight: 101.6 kg

DRUGS (9)
  1. SYMBICORT [Suspect]
     Indication: ASTHMA
     Dosage: 320MCG BID
     Route: 055
     Dates: start: 2005
  2. SYMBICORT [Suspect]
     Indication: ASTHMA
     Dosage: SYMBICORT 160/4.5MCG, 2 PUFFS BID
     Route: 055
     Dates: start: 20131202
  3. PRILOSEC OTC [Suspect]
     Indication: GASTROOESOPHAGEAL REFLUX DISEASE
     Route: 048
     Dates: start: 2004
  4. PROZAC [Concomitant]
     Indication: ANXIETY
     Route: 048
     Dates: start: 2004
  5. DIAZIDE [Concomitant]
     Indication: HYPERTENSION
     Route: 048
  6. NORVASC [Concomitant]
     Indication: HYPERTENSION
     Route: 048
     Dates: start: 2011
  7. CLARITIN OTC [Concomitant]
     Indication: HYPERSENSITIVITY
     Route: 048
  8. NEURONTIN [Concomitant]
     Indication: SPINAL COLUMN STENOSIS
     Route: 048
     Dates: start: 201308
  9. LEVOTHYROXIN [Concomitant]
     Indication: HYPOTHYROIDISM
     Route: 048
     Dates: start: 2002

REACTIONS (5)
  - Upper respiratory tract infection [Unknown]
  - Bronchiectasis [Unknown]
  - Dyspnoea [Unknown]
  - Reading disorder [Unknown]
  - Intentional product misuse [Unknown]
